FAERS Safety Report 9265687 (Version 2)
Quarter: 2013Q2

REPORT INFORMATION
  Report Type: Spontaneous
  Country: US (occurrence: US)
  Receive Date: 20130501
  Receipt Date: 20130619
  Transmission Date: 20140414
  Serious: Yes (Hospitalization, Other)
  Sender: FDA-Public Use
  Company Number: US-ASTRAZENECA-2013SE28417

PATIENT
  Age: 67 Year
  Sex: Female

DRUGS (17)
  1. CRESTOR [Suspect]
     Indication: LOW DENSITY LIPOPROTEIN INCREASED
     Route: 048
     Dates: start: 2008
  2. CRESTOR [Suspect]
     Indication: LOW DENSITY LIPOPROTEIN INCREASED
     Route: 048
  3. TOPROL XL [Suspect]
     Route: 048
     Dates: start: 20130220
  4. TOPROL XL [Suspect]
     Route: 048
  5. PRILOSEC [Suspect]
     Route: 048
  6. PRILOSEC OTC [Suspect]
     Route: 048
     Dates: start: 20071107
  7. PRILOSEC OTC [Suspect]
     Dosage: DAILY
     Route: 048
  8. KLONOPIN [Concomitant]
     Dosage: 0.5 MG 1-2 TABLET DAILY AT BEDTIME
     Dates: start: 20130409
  9. TIZANIDINE HCL [Concomitant]
     Indication: MUSCLE SPASMS
     Dosage: 4 MG TAKE ONE TABLET BY ORAL ROUTE EVERY 6-8 HOURS PRN
     Route: 048
     Dates: start: 20130305
  10. CYMBALTA [Concomitant]
     Dosage: 60 MG ONE TABLET DAILY
     Dates: start: 20130220
  11. SYNTHROID [Concomitant]
     Dosage: 75 MCG ONE TABLET DAILY
     Dates: start: 20130220
  12. CARDIZEM CD [Concomitant]
     Dosage: 240 MG ONE TABLET DAILY
     Dates: start: 20130220
  13. SINGULAIR [Concomitant]
     Dosage: TAKE ONE TABLET (10 MG) BY ORAL ROUTE EVERY DAY IN THE EVENING
     Route: 048
     Dates: start: 20130220
  14. LEVSIN SL [Concomitant]
     Indication: ABDOMINAL PAIN
     Dosage: 0.125 MG ONE SL Q 4-6 HOUR PRN
     Dates: start: 20130220
  15. PERCOCET [Concomitant]
     Dosage: 5MG-325MG TEKE ONE TABLET BY ORAL ROUTE EVERY SIX HOURS AS NEEDED
     Route: 048
     Dates: start: 20130208
  16. ASPIRIN [Concomitant]
     Dosage: 325 MG ONE TABLET DAILY
     Dates: start: 20090105
  17. VITAMIN D [Concomitant]
     Dosage: 2000 UNITS TWO TABLETS DAILY
     Dates: start: 20081210

REACTIONS (34)
  - Pancreatitis [Recovered/Resolved]
  - Myocardial infarction [Unknown]
  - Left ventricular dysfunction [Unknown]
  - Neoplasm skin [Unknown]
  - Transient ischaemic attack [Unknown]
  - Asthma [Unknown]
  - Arteriosclerosis [Unknown]
  - Major depression [Unknown]
  - Hypertension [Unknown]
  - Hyperlipidaemia [Unknown]
  - Peptic ulcer [Unknown]
  - Osteoarthritis [Unknown]
  - Vitamin D deficiency [Unknown]
  - Actinic keratosis [Unknown]
  - Eczema [Unknown]
  - Dermatitis atopic [Unknown]
  - Hypothyroidism [Unknown]
  - Palpitations [Unknown]
  - Carpal tunnel syndrome [Unknown]
  - Rhinitis allergic [Unknown]
  - Factor V Leiden mutation [Unknown]
  - Menopausal disorder [Unknown]
  - Cyclitis [Unknown]
  - Haemorrhoids [Unknown]
  - Osteopenia [Unknown]
  - Oesophagitis [Unknown]
  - Gastrooesophageal reflux disease [Unknown]
  - Back pain [Unknown]
  - Diverticulum [Unknown]
  - Headache [Unknown]
  - Dyslipidaemia [Unknown]
  - Oesophageal stenosis [Unknown]
  - Angina pectoris [Unknown]
  - Hepatic cyst [Unknown]
